FAERS Safety Report 4352311-6 (Version None)
Quarter: 2004Q2

REPORT INFORMATION
  Report Type: 
  Country: None (occurrence: None)
  Receive Date: 20040428
  Receipt Date: 20040416
  Transmission Date: 20050107
  Serious: Yes (Hospitalization)
  Sender: FDA-Public Use
  Company Number: JP-JNJFOC-20040400562

PATIENT
  Age: 43 Year
  Sex: Male
  Weight: 58 kg

DRUGS (3)
  1. REMICADE [Suspect]
     Indication: ANAL FISTULA
     Dosage: 290 MG, 1 IN 1 AS NECESSARY
     Dates: start: 20030205, end: 20030205
  2. REMICADE [Suspect]
     Indication: CROHN'S DISEASE
     Dosage: 290 MG, 1 IN 1 AS NECESSARY
     Dates: start: 20030205, end: 20030205
  3. RHEUMATREX [Concomitant]

REACTIONS (1)
  - CATHETER SEPSIS [None]
